FAERS Safety Report 6171178-7 (Version None)
Quarter: 2009Q2

REPORT INFORMATION
  Report Type: 
  Country: None (occurrence: None)
  Receive Date: 20090429
  Receipt Date: 20090420
  Transmission Date: 20091009
  Serious: Yes (Hospitalization)
  Sender: FDA-Public Use
  Company Number: US-BIOGENIDEC-2008BI029690

PATIENT
  Age: 41 Year
  Sex: Male

DRUGS (7)
  1. TYSABRI [Suspect]
     Indication: MULTIPLE SCLEROSIS
     Route: 042
     Dates: start: 20080507
  2. BACLOFEN [Concomitant]
     Indication: MUSCLE SPASTICITY
  3. PROVIGIL [Concomitant]
     Indication: FATIGUE
  4. PROVIGIL [Concomitant]
     Indication: SOMNOLENCE
  5. BOTOX [Concomitant]
     Indication: MUSCLE SPASTICITY
  6. BOTOX [Concomitant]
     Indication: ATAXIA
  7. BOTOX [Concomitant]
     Indication: TREMOR

REACTIONS (3)
  - DEEP VEIN THROMBOSIS [None]
  - DRUG DELIVERY DEVICE IMPLANTATION [None]
  - PULMONARY EMBOLISM [None]
